FAERS Safety Report 12037048 (Version 1)
Quarter: 2016Q1

REPORT INFORMATION
  Report Type: Spontaneous
  Country: US (occurrence: None)
  Receive Date: 20160205
  Receipt Date: 20160205
  Transmission Date: 20160526
  Serious: No
  Sender: FDA-Public Use
  Company Number: None

PATIENT
  Age: 71 Year
  Sex: Female
  Weight: 61.24 kg

DRUGS (6)
  1. ESTROGEN [Concomitant]
     Active Substance: ESTRONE\SUS SCROFA OVARY
  2. IBUPROFEN. [Concomitant]
     Active Substance: IBUPROFEN
  3. GLUCOSAMIN-CHONDROTIN [Concomitant]
  4. VITAMIN D [Concomitant]
     Active Substance: CHOLECALCIFEROL
  5. GABAPENTIN. [Suspect]
     Active Substance: GABAPENTIN
     Indication: SCIATICA
     Dosage: 300-900 MG
     Route: 048
     Dates: start: 20160115, end: 20160121
  6. HCTHIAZIDE-TRIAMTERENE [Concomitant]

REACTIONS (3)
  - Dry mouth [None]
  - Mouth ulceration [None]
  - Tongue ulceration [None]

NARRATIVE: CASE EVENT DATE: 20160121
